FAERS Safety Report 18134470 (Version 1)
Quarter: 2020Q3

REPORT INFORMATION
  Report Type: Spontaneous
  Country: US (occurrence: US)
  Receive Date: 20200811
  Receipt Date: 20200811
  Transmission Date: 20201103
  Serious: Yes (Death)
  Sender: FDA-Public Use
  Company Number: US-ALVOGEN-2020-ALVOGEN-113808

PATIENT
  Age: 31 Year
  Sex: Female

DRUGS (1)
  1. GRALISE [Suspect]
     Active Substance: GABAPENTIN
     Indication: MIGRAINE
     Dosage: STRENGTH: 600 MG, QD
     Route: 048
     Dates: start: 20160603

REACTIONS (1)
  - Death [Fatal]

NARRATIVE: CASE EVENT DATE: 20200620
